FAERS Safety Report 5929955-0 (Version None)
Quarter: 2008Q4

REPORT INFORMATION
  Report Type: 
  Country: None (occurrence: None)
  Receive Date: 20081024
  Receipt Date: 20081014
  Transmission Date: 20090506
  Serious: Yes (Other)
  Sender: FDA-Public Use
  Company Number: US-PURDUE-USA_2004_0015174

PATIENT
  Age: 50 Year
  Sex: Female

DRUGS (5)
  1. OXYCONTIN [Suspect]
     Indication: PAIN
     Dosage: 80 MG, TID
     Dates: start: 19960101
  2. FISH OIL [Concomitant]
     Indication: BLOOD CHOLESTEROL INCREASED
     Dosage: 3 CAPSL, DAILY
  3. VITAMIN B12                        /00091801/ [Concomitant]
     Indication: MEDICAL DIET
     Dosage: 1 TABLET, DAILY
     Dates: start: 20060101
  4. LISINOPRIL [Concomitant]
     Indication: HYPERTENSION
     Dosage: 5 MG, DAILY
     Dates: start: 20060101
  5. FLUOXETINE [Concomitant]
     Indication: DEPRESSION
     Dosage: 10 MG, DAILY
     Dates: start: 20060101

REACTIONS (6)
  - ENDODONTIC PROCEDURE [None]
  - NAUSEA [None]
  - PERIODONTAL DISEASE [None]
  - TOOTH DISORDER [None]
  - TOOTH LOSS [None]
  - WEIGHT INCREASED [None]
